FAERS Safety Report 9444213 (Version 1)
Quarter: 2013Q3

REPORT INFORMATION
  Report Type: Spontaneous
  Country: US (occurrence: None)
  Receive Date: 20130724
  Receipt Date: 20130724
  Transmission Date: 20140515
  Serious: Yes (Hospitalization, Other)
  Sender: FDA-Public Use
  Company Number: 2013037007

PATIENT
  Sex: Female
  Weight: 73.48 kg

DRUGS (25)
  1. HIZENTRA (IMMUNOGLOBULIN HUMAN NORMAL) [Suspect]
     Indication: IMMUNODEFICIENCY COMMON VARIABLE
     Dosage: 1X/WEEK
     Route: 058
  2. HIZENTRA (IMMUNOGLOBULIN HUMAN NORMAL) [Suspect]
     Indication: HYPOGLOBULINAEMIA
     Dosage: 1X/WEEK
     Route: 058
  3. ACETAMINOPHEN (PARACETAMOL) [Concomitant]
  4. DIPHENHYDRAMINE (DIPHENHYDRAMINE) [Concomitant]
  5. LIDOCAINE (LIDOCAINE) [Concomitant]
  6. EPI-PEN (EPINEPHRINE) [Concomitant]
  7. PREDNISONE (PREDNISONE) [Concomitant]
  8. GLYBURIDE (GLIBENCLAMIDE) [Concomitant]
  9. FLONASE (FLUTICASONE PROPIONATE) [Concomitant]
  10. ADVAIR (SERETIDE/01420901/) [Concomitant]
  11. SPIRIVA (TIOTROPIUM BROMIDE) [Concomitant]
  12. LISINOPRIL (LISINOPRIL) [Concomitant]
  13. FOSAMAX (ALENDRONATE SODIUM) [Concomitant]
  14. XANAX (ALPRAZOLAM) [Concomitant]
  15. ROBAXIN (METHOCARBAMOL) [Concomitant]
  16. NABUMETONE (NABUMETONE) [Concomitant]
  17. PRIMIDONE (PRIMIDONE) [Concomitant]
  18. METOPROLOL (METOPROLOL) [Concomitant]
  19. COMBIVENT (COMBIVENT/10261001/) [Concomitant]
  20. HYDROCODONE-APAP (PROCET/01554201/) [Concomitant]
  21. ALBUTEROL (SALBUTAMOL) [Concomitant]
  22. MUCINEX [Concomitant]
  23. PROMETHAZINE (PROMETHAZINE) [Concomitant]
  24. ALBUTEROL SULFATE (SALBUTAMOL SULFATE) [Concomitant]
  25. NEURONTIN (GABAPENTIN) [Concomitant]

REACTIONS (3)
  - Myocardial infarction [None]
  - Heart rate decreased [None]
  - Blood pressure decreased [None]
